FAERS Safety Report 15889840 (Version 1)
Quarter: 2019Q1

REPORT INFORMATION
  Report Type: Spontaneous
  Country: HU (occurrence: HU)
  Receive Date: 20190130
  Receipt Date: 20190130
  Transmission Date: 20190417
  Serious: Yes (Other)
  Sender: FDA-Public Use
  Company Number: PHHY2019HU019446

PATIENT
  Age: 59 Year
  Sex: Male

DRUGS (2)
  1. EXELON PATCH [Suspect]
     Active Substance: RIVASTIGMINE
     Indication: PRODUCT USED FOR UNKNOWN INDICATION
     Dosage: 9.5 MG, UNK (PATCH 10 (CM2)
     Route: 062
  2. EXELON PATCH [Suspect]
     Active Substance: RIVASTIGMINE
     Dosage: 4.5 MG, QD (PATCH 5 (CM2)
     Route: 062
     Dates: start: 201901, end: 20190124

REACTIONS (3)
  - Dysuria [Recovering/Resolving]
  - Frontotemporal dementia [Not Recovered/Not Resolved]
  - Salivary hypersecretion [Recovering/Resolving]
